FAERS Safety Report 8505964-2 (Version None)
Quarter: 2012Q3

REPORT INFORMATION
  Report Type: 
  Country: None (occurrence: None)
  Receive Date: 20120712
  Receipt Date: 20120705
  Transmission Date: 20120928
  Serious: Yes (Hospitalization)
  Sender: FDA-Public Use
  Company Number: US-GLAXOSMITHKLINE-A0983414A

PATIENT
  Age: 74 Year
  Sex: Male

DRUGS (10)
  1. VITAMIN D [Concomitant]
  2. GLUCOSAMINE + CHONDROITIN [Concomitant]
  3. VITAMIN-MINERAL COMPOUND TAB [Concomitant]
  4. MULTI-VITAMIN [Concomitant]
  5. RESTASIS [Concomitant]
  6. ASCORBIC ACID [Concomitant]
  7. ADVAIR DISKUS 100/50 [Suspect]
     Indication: CHRONIC OBSTRUCTIVE PULMONARY DISEASE
     Dosage: 1PUFF TWICE PER DAY
     Route: 055
  8. VENTOLIN [Concomitant]
     Indication: CHRONIC OBSTRUCTIVE PULMONARY DISEASE
     Route: 055
  9. SINGULAIR [Concomitant]
  10. LEVOXYL [Concomitant]

REACTIONS (5)
  - DYSPHONIA [None]
  - COUGH [None]
  - OROPHARYNGEAL PAIN [None]
  - PNEUMONIA [None]
  - CANDIDIASIS [None]
